FAERS Safety Report 21633137 (Version 7)
Quarter: 2023Q1

REPORT INFORMATION
  Report Type: Spontaneous
  Country: US (occurrence: US)
  Receive Date: 20221123
  Receipt Date: 20230315
  Transmission Date: 20230418
  Serious: No
  Sender: FDA-Public Use
  Company Number: US-PFIZER INC-PV202200107690

PATIENT
  Age: 62 Year
  Sex: Female

DRUGS (1)
  1. IBRANCE [Suspect]
     Active Substance: PALBOCICLIB
     Dosage: 125 MG

REACTIONS (7)
  - Body temperature fluctuation [Unknown]
  - Feeling of body temperature change [Unknown]
  - Oxygen saturation decreased [Unknown]
  - Alopecia [Unknown]
  - Pruritus [Unknown]
  - Nausea [Unknown]
  - Product dose omission in error [Unknown]
